FAERS Safety Report 20622723 (Version 1)
Quarter: 2022Q1

REPORT INFORMATION
  Report Type: Spontaneous
  Country: US (occurrence: US)
  Receive Date: 20220322
  Receipt Date: 20220322
  Transmission Date: 20220423
  Serious: No
  Sender: FDA-Public Use
  Company Number: US-ALLERGAN-2141171US

PATIENT
  Sex: Female

DRUGS (1)
  1. LUMIGAN [Suspect]
     Active Substance: BIMATOPROST
     Indication: Product used for unknown indication
     Dosage: UNK
     Route: 047

REACTIONS (6)
  - Superficial injury of eye [Unknown]
  - Accidental exposure to product [Unknown]
  - Ocular discomfort [Unknown]
  - Product use complaint [Unknown]
  - Product container seal issue [Unknown]
  - Product quality issue [Unknown]
